FAERS Safety Report 6872145-8 (Version None)
Quarter: 2010Q3

REPORT INFORMATION
  Report Type: 
  Country: None (occurrence: None)
  Receive Date: 20100723
  Receipt Date: 20100715
  Transmission Date: 20110219
  Serious: Yes (Hospitalization)
  Sender: FDA-Public Use
  Company Number: CHPA2010US11614

PATIENT
  Age: 50 Year
  Sex: Female

DRUGS (5)
  1. PRIVATE LABEL (NCH) [Suspect]
     Indication: SMOKING CESSATION THERAPY
     Dosage: 21 MG, QD
     Route: 062
     Dates: start: 20100623, end: 20100624
  2. PREMARIN [Concomitant]
     Route: 048
  3. PROTONIX [Concomitant]
     Indication: GASTRIC DISORDER
     Route: 048
  4. CRESTOR [Concomitant]
     Indication: BLOOD CHOLESTEROL INCREASED
     Route: 048
  5. DIAZEPAM [Concomitant]
     Indication: MUSCLE SPASMS
     Route: 048

REACTIONS (17)
  - ABDOMINAL DISTENSION [None]
  - ABDOMINAL PAIN [None]
  - ABDOMINAL PAIN UPPER [None]
  - APHONIA [None]
  - ASTHENIA [None]
  - COLD SWEAT [None]
  - CONFUSIONAL STATE [None]
  - DIZZINESS [None]
  - DROOLING [None]
  - DRY MOUTH [None]
  - DYSPHAGIA [None]
  - FLATULENCE [None]
  - HEADACHE [None]
  - HEARING IMPAIRED [None]
  - NAUSEA [None]
  - PALLOR [None]
  - VISUAL IMPAIRMENT [None]
